FAERS Safety Report 12324646 (Version 1)
Quarter: 2016Q2

REPORT INFORMATION
  Report Type: Spontaneous
  Country: US (occurrence: US)
  Receive Date: 20160502
  Receipt Date: 20160502
  Transmission Date: 20160815
  Serious: No
  Sender: FDA-Public Use
  Company Number: US-BAXALTA-2016BLT002920

PATIENT
  Age: 49 Year
  Sex: Female

DRUGS (1)
  1. HYQVIA [Suspect]
     Active Substance: HUMAN IMMUNOGLOBULIN G\HYALURONIDASE RECOMBINANT HUMAN
     Indication: PRODUCT USED FOR UNKNOWN INDICATION
     Dosage: 37.5 G, EVERY 4 WK
     Route: 065
     Dates: start: 201506

REACTIONS (5)
  - Condition aggravated [Unknown]
  - Cutis laxa [Unknown]
  - Gastrointestinal disorder [Unknown]
  - Local swelling [Unknown]
  - Drug intolerance [Unknown]
